FAERS Safety Report 16934131 (Version 1)
Quarter: 2019Q4

REPORT INFORMATION
  Report Type: Spontaneous
  Country: US (occurrence: US)
  Receive Date: 20191018
  Receipt Date: 20191018
  Transmission Date: 20200122
  Serious: Yes (Death, Life-Threatening, Hospitalization, Other)
  Sender: FDA-Public Use
  Company Number: US-ACCORD-157985

PATIENT
  Age: 58 Year
  Sex: Male

DRUGS (4)
  1. TACROLIMUS. [Suspect]
     Active Substance: TACROLIMUS
     Indication: IMMUNOSUPPRESSANT DRUG THERAPY
  2. VORICONAZOLE. [Concomitant]
     Active Substance: VORICONAZOLE
  3. SULFAMETHOXAZOLE/TRIMETHOPRIM [Concomitant]
  4. GANCICLOVIR. [Concomitant]
     Active Substance: GANCICLOVIR

REACTIONS (4)
  - Post transplant lymphoproliferative disorder [Fatal]
  - Multiple organ dysfunction syndrome [Fatal]
  - Metabolic acidosis [Unknown]
  - Syncope [Unknown]
